FAERS Safety Report 6386319-6 (Version None)
Quarter: 2009Q4

REPORT INFORMATION
  Report Type: 
  Country: None (occurrence: None)
  Receive Date: 20091002
  Receipt Date: 20090921
  Transmission Date: 20100525
  Serious: Yes (Other)
  Sender: FDA-Public Use
  Company Number: PHEH2009US04338

PATIENT
  Sex: Male
  Weight: 76.19 kg

DRUGS (12)
  1. EXJADE [Suspect]
     Indication: LEUKAEMIA
     Dosage: 1500 MG, DAILY
     Route: 048
     Dates: start: 20090417, end: 20090920
  2. EXJADE [Suspect]
     Indication: IRON OVERLOAD
  3. EXJADE [Suspect]
     Indication: IRON METABOLISM DISORDER
  4. ARMOUR THYROID [Concomitant]
     Dosage: 90MG
  5. AMBIEN [Concomitant]
     Dosage: 10MG
  6. INSULIN [Concomitant]
     Dosage: 100 UNITS
  7. ALPRAZOLAM [Concomitant]
     Dosage: 5MG AS NEEDED
  8. COZAAR [Concomitant]
     Dosage: 50MG DAILY
  9. SPIRONOLACTONE [Concomitant]
     Dosage: 25MG AT 1AM AND 1PM
  10. ISOSORBIDE [Concomitant]
     Dosage: 60MG AT 1AM AND 1PM
  11. PLAVIX [Concomitant]
     Dosage: 75MG DAILY
  12. LUXIQ [Suspect]

REACTIONS (7)
  - ASTHENIA [None]
  - DIARRHOEA [None]
  - DIZZINESS [None]
  - DYSPNOEA [None]
  - NAUSEA [None]
  - THROAT TIGHTNESS [None]
  - VOMITING [None]
